FAERS Safety Report 11925045 (Version 1)
Quarter: 2016Q1

REPORT INFORMATION
  Report Type: Spontaneous
  Country: US (occurrence: US)
  Receive Date: 20160118
  Receipt Date: 20160118
  Transmission Date: 20160526
  Serious: Yes (Hospitalization, Other)
  Sender: FDA-Public Use
  Company Number: US-GILEAD-2016-0192517

PATIENT
  Age: 52 Year
  Sex: Male

DRUGS (4)
  1. BENTOLIN [Concomitant]
     Active Substance: ALBUTEROL
  2. ADVAIR HFA [Concomitant]
     Active Substance: FLUTICASONE PROPIONATE\SALMETEROL XINAFOATE
  3. HARVONI [Suspect]
     Active Substance: LEDIPASVIR\SOFOSBUVIR
     Indication: PRODUCT USED FOR UNKNOWN INDICATION
     Dosage: UNK
     Route: 065
     Dates: start: 20150807
  4. SEEBRI [Concomitant]
     Active Substance: GLYCOPYRRONIUM

REACTIONS (4)
  - Transient ischaemic attack [Unknown]
  - Joint injury [Unknown]
  - Syncope [Unknown]
  - Fall [Unknown]

NARRATIVE: CASE EVENT DATE: 201601
